FAERS Safety Report 8541053-9 (Version None)
Quarter: 2012Q3

REPORT INFORMATION
  Report Type: 
  Country: None (occurrence: None)
  Receive Date: 20120726
  Receipt Date: 20110822
  Transmission Date: 20120928
  Serious: No
  Sender: FDA-Public Use
  Company Number: US-ASTRAZENECA-2011SE50187

PATIENT
  Age: 39 Year
  Sex: Female

DRUGS (3)
  1. FLOUXETINE [Concomitant]
  2. ASPIRIN [Concomitant]
  3. SEROQUEL [Suspect]
     Indication: INSOMNIA
     Route: 048
     Dates: start: 20060101

REACTIONS (2)
  - INSOMNIA [None]
  - OFF LABEL USE [None]
